FAERS Safety Report 5499549-2 (Version None)
Quarter: 2007Q4

REPORT INFORMATION
  Report Type: 
  Country: None (occurrence: None)
  Receive Date: 20071026
  Receipt Date: 20071013
  Transmission Date: 20080405
  Serious: Yes (Hospitalization)
  Sender: FDA-Public Use
  Company Number: BR-SHR-BR-2007-037070

PATIENT
  Age: 53 Year
  Sex: Male

DRUGS (14)
  1. BETASERON [Suspect]
     Dosage: 8 MIU, EVERY 2D
     Route: 058
     Dates: start: 20030101
  2. INSULIN [Concomitant]
  3. HYDROCHLOROTHIAZIDE [Concomitant]
     Indication: HYPERTENSION
  4. FORMOTEROL FUMARATE [Suspect]
     Indication: PULMONARY EOSINOPHILIA
     Dosage: UNK, UNK
  5. VERAPAMIL [Concomitant]
     Indication: HYPERTENSION
     Dosage: 80 MG, 1X/DAY
  6. HYGROTON [Concomitant]
     Indication: HYPERTENSION
     Dosage: UNK, 1X/DAY
  7. LOSARTAN POTASSIUM [Concomitant]
     Indication: HYPERTENSION
     Dosage: 50 MG, 2X/DAY
  8. ALENDRONATE SODIUM [Concomitant]
     Indication: OSTEOPOROSIS
     Dosage: 70 MG, 1X/WEEK
  9. CALDINE [Concomitant]
     Indication: OSTEOPOROSIS
     Dosage: UNK, 1X/DAY
  10. TESTOSTERONE [Concomitant]
     Indication: HYPOGONADISM MALE
     Dosage: 250 MG, 2X/MONTH
  11. OMEPRAZOLE [Concomitant]
     Dosage: 40 MG, 1X/DAY
  12. FOLIC ACID [Concomitant]
     Dosage: 5 MG, 1X/DAY
  13. DIMETICONE [Concomitant]
     Indication: PULMONARY EOSINOPHILIA
     Dosage: UNK, UNK
  14. BUDESONIDE [Concomitant]
     Indication: PULMONARY EOSINOPHILIA
     Dosage: UNK, UNK

REACTIONS (5)
  - BLOOD GLUCOSE INCREASED [None]
  - CHILLS [None]
  - DYSPNOEA [None]
  - MULTIPLE SCLEROSIS [None]
  - SKIN DISCOLOURATION [None]
